FAERS Safety Report 9833995 (Version 3)
Quarter: 2014Q1

REPORT INFORMATION
  Report Type: Report from Study
  Country: CA (occurrence: CA)
  Receive Date: 20140122
  Receipt Date: 20140131
  Transmission Date: 20141002
  Serious: Yes (Other)
  Sender: FDA-Public Use
  Company Number: CA-ALEXION PHARMACEUTICALS INC.-A201303803

PATIENT
  Age: 56 Year
  Sex: Female
  Weight: 83 kg

DRUGS (14)
  1. SOLIRIS [Suspect]
     Indication: PAROXYSMAL NOCTURNAL HAEMOGLOBINURIA
     Dosage: 600 MG, QW
     Route: 042
     Dates: start: 20120604, end: 20120625
  2. SOLIRIS [Suspect]
     Dosage: 900 MG, Q2W
     Route: 042
     Dates: start: 20120703
  3. ELTROXIN [Concomitant]
     Dosage: 50 ?G, QD
     Route: 048
     Dates: start: 1992
  4. EZETROL [Concomitant]
     Dosage: 10 MG, QD
     Route: 048
     Dates: start: 2009
  5. ATENOLOL [Concomitant]
     Dosage: 50 MG, QD
     Route: 048
     Dates: start: 2002
  6. METFORMIN [Concomitant]
     Dosage: 500 MG, UNK
     Route: 048
     Dates: start: 2002
  7. DIAMICRON MR [Concomitant]
     Dosage: 30 MG, QD
     Route: 048
     Dates: start: 2011
  8. SYMBICORT [Concomitant]
     Dosage: 2 PUFFS, BID PRN
     Dates: start: 2010
  9. MULTIVITAMIN [Concomitant]
     Dosage: 1 DF, QD
     Route: 048
  10. VITAMIN C [Concomitant]
     Dosage: 1 DF, QD
     Route: 048
  11. VITAMIN E [Concomitant]
     Dosage: 1 DF, QD
     Route: 048
  12. VITAMIN B12 [Concomitant]
     Dosage: 1 DF, QD
     Route: 048
  13. PREDNISONE [Concomitant]
     Indication: APLASTIC ANAEMIA
     Dosage: UNK
     Dates: start: 201308
  14. CYCLOSPORINE [Concomitant]
     Indication: APLASTIC ANAEMIA
     Dosage: UNK
     Dates: start: 201308

REACTIONS (1)
  - Haemoglobin decreased [Recovered/Resolved]
